FAERS Safety Report 4425816-7 (Version None)
Quarter: 2004Q3

REPORT INFORMATION
  Report Type: 
  Country: None (occurrence: None)
  Receive Date: 20040810
  Receipt Date: 20040728
  Transmission Date: 20050211
  Serious: Yes (Hospitalization, Other)
  Sender: FDA-Public Use
  Company Number: 2004050859

PATIENT
  Age: 63 Year
  Sex: Male

DRUGS (7)
  1. LIPITOR [Suspect]
     Indication: LIPIDS INCREASED
     Dosage: 80 MG (80 MG, 1 IN 1 D), ORAL
     Route: 048
     Dates: start: 20020701, end: 20040301
  2. METOPROLOL SUCCINATE [Concomitant]
  3. ASPIRIN [Concomitant]
  4. FUROSEMIDE [Concomitant]
  5. ENALAPRIL MALEATE [Concomitant]
  6. INSULIN LISPRO (INSULIN LISPRO) [Concomitant]
  7. INSULIN GLARGINE (INSULIN GLARGINE) [Concomitant]

REACTIONS (6)
  - ANXIETY [None]
  - BALANCE DISORDER [None]
  - DIFFICULTY IN WALKING [None]
  - FALL [None]
  - HYPOAESTHESIA [None]
  - MUSCULAR WEAKNESS [None]
